FAERS Safety Report 9148403 (Version 1)
Quarter: 2013Q1

REPORT INFORMATION
  Report Type: Spontaneous
  Country: US (occurrence: None)
  Receive Date: 20130215
  Receipt Date: 20130215
  Transmission Date: 20140127
  Serious: Yes (Death)
  Sender: FDA-Public Use
  Company Number: SYM-2013-00373

PATIENT
  Age: 47 Year
  Sex: Female

DRUGS (6)
  1. BUPROPION [Suspect]
     Route: 048
  2. LORAZEPAM [Suspect]
     Route: 048
  3. QUETIAPINE [Suspect]
     Route: 048
  4. GABAPENTIN [Suspect]
     Route: 048
  5. SERTRALINE [Suspect]
     Route: 048
  6. OXCARBAZEPINE [Suspect]
     Route: 048

REACTIONS (2)
  - Poisoning [None]
  - Completed suicide [None]
